APPROVED DRUG PRODUCT: FLUTAMIDE
Active Ingredient: FLUTAMIDE
Strength: 125MG
Dosage Form/Route: CAPSULE;ORAL
Application: A076224 | Product #001
Applicant: PHARMOBEDIENT CONSULTING LLC
Approved: May 9, 2003 | RLD: No | RS: No | Type: DISCN